FAERS Safety Report 20311327 (Version 1)
Quarter: 2022Q1

REPORT INFORMATION
  Report Type: Spontaneous
  Country: US (occurrence: US)
  Receive Date: 20220107
  Receipt Date: 20220107
  Transmission Date: 20220424
  Serious: No
  Sender: FDA-Public Use
  Company Number: US-Emergent Biosolutions-21000291SP

PATIENT
  Sex: Male

DRUGS (2)
  1. NARCAN [Suspect]
     Active Substance: NALOXONE HYDROCHLORIDE
     Indication: Overdose
     Dosage: 4 MILLIGRAM
     Route: 045
     Dates: start: 20211214, end: 20211214
  2. METHADONE [Suspect]
     Active Substance: METHADONE HYDROCHLORIDE
     Indication: Pain
     Route: 065

REACTIONS (5)
  - Hypoaesthesia [Unknown]
  - Feeling jittery [Unknown]
  - Faeces discoloured [Unknown]
  - Hyperhidrosis [Unknown]
  - Diarrhoea [Not Recovered/Not Resolved]

NARRATIVE: CASE EVENT DATE: 20211214
